FAERS Safety Report 23716075 (Version 1)
Quarter: 2024Q2

REPORT INFORMATION
  Report Type: Spontaneous
  Country: GB (occurrence: GB)
  Receive Date: 20240408
  Receipt Date: 20240408
  Transmission Date: 20240716
  Serious: Yes (Other)
  Sender: FDA-Public Use
  Company Number: GB-MHRA-MED-202403242230569790-SQTGW

PATIENT
  Age: 48 Year
  Sex: Male
  Weight: 67 kg

DRUGS (1)
  1. METRONIDAZOLE [Suspect]
     Active Substance: METRONIDAZOLE
     Indication: Tooth abscess
     Dosage: 400 MILLIGRAM, 3 TIMES A DAY (400MG 3 X DAILY; )
     Route: 065

REACTIONS (1)
  - Chromaturia [Recovering/Resolving]

NARRATIVE: CASE EVENT DATE: 20240324
